FAERS Safety Report 14010470 (Version 1)
Quarter: 2017Q3

REPORT INFORMATION
  Report Type: Spontaneous
  Country: GB (occurrence: GB)
  Receive Date: 20170926
  Receipt Date: 20170926
  Transmission Date: 20171128
  Serious: Yes (Other)
  Sender: FDA-Public Use
  Company Number: GB-AUROBINDO-AUR-APL-2017-40515

PATIENT
  Age: 75 Year
  Sex: Female

DRUGS (5)
  1. OMEPRAZOLE. [Concomitant]
     Active Substance: OMEPRAZOLE
     Indication: PRODUCT USED FOR UNKNOWN INDICATION
     Dosage: 20 MG, ONCE A DAY
     Route: 048
     Dates: start: 20091106
  2. CAPSAICIN. [Concomitant]
     Active Substance: CAPSAICIN
     Indication: MYALGIA
     Route: 061
     Dates: start: 20160928
  3. GABAPENTIN CAPSULES [Suspect]
     Active Substance: GABAPENTIN
     Indication: PAIN IN EXTREMITY
     Dosage: 100 MG, 3 TIMES A DAY
     Route: 048
     Dates: start: 20170728, end: 20170731
  4. PARACETAMOL [Concomitant]
     Active Substance: ACETAMINOPHEN
     Indication: MYALGIA
     Dosage: OVER THE COUNTER, STANDARD DOSE
     Route: 065
  5. CARBIMAZOLE [Concomitant]
     Active Substance: CARBIMAZOLE
     Indication: PRODUCT USED FOR UNKNOWN INDICATION
     Dosage: 5MG + 10MG
     Route: 048
     Dates: start: 20150610

REACTIONS (2)
  - Diplopia [Recovered/Resolved]
  - Confusional state [Recovered/Resolved]

NARRATIVE: CASE EVENT DATE: 20170729
